FAERS Safety Report 25326174 (Version 1)
Quarter: 2025Q2

REPORT INFORMATION
  Report Type: Spontaneous
  Country: US (occurrence: US)
  Receive Date: 20250516
  Receipt Date: 20250516
  Transmission Date: 20250717
  Serious: No
  Sender: ROCHE
  Company Number: US-ROCHE-10000270470

PATIENT
  Age: 25 Year
  Sex: Female

DRUGS (2)
  1. OCRELIZUMAB [Suspect]
     Active Substance: OCRELIZUMAB
     Indication: Multiple sclerosis
     Route: 065
     Dates: start: 201907, end: 202210
  2. UBLITUXIMAB [Concomitant]
     Active Substance: UBLITUXIMAB
     Indication: Multiple sclerosis
     Dates: start: 202303

REACTIONS (1)
  - Paraesthesia [Recovering/Resolving]
